FAERS Safety Report 8967595 (Version 1)
Quarter: 2012Q4

REPORT INFORMATION
  Report Type: 
  Country: US (occurrence: US)
  Receive Date: 20121217
  Receipt Date: 20121217
  Transmission Date: 20130627
  Serious: Yes (Other)
  Sender: FDA-Public Use
  Company Number: US-AMGEN-USASP2012080471

PATIENT
  Sex: Male

DRUGS (1)
  1. VECTIBIX [Suspect]
     Indication: PRODUCT USED FOR UNKNOWN INDICATION
     Dosage: 500 mg, q2wk
     Dates: start: 2012

REACTIONS (10)
  - Hepatic cancer metastatic [Unknown]
  - Blister [Unknown]
  - Drug ineffective [Unknown]
  - Carcinoembryonic antigen increased [Unknown]
  - Photosensitivity reaction [Unknown]
  - Acne [Unknown]
  - Pruritus [Unknown]
  - Onychoclasis [Unknown]
  - Diarrhoea [Unknown]
  - Fatigue [Unknown]
